FAERS Safety Report 25341211 (Version 1)
Quarter: 2025Q2

REPORT INFORMATION
  Report Type: Spontaneous
  Country: AR (occurrence: AR)
  Receive Date: 20250521
  Receipt Date: 20250521
  Transmission Date: 20250716
  Serious: Yes (Hospitalization, Other)
  Sender: RANBAXY
  Company Number: AR-SUN PHARMACEUTICAL INDUSTRIES LTD-2025R1-507775

PATIENT
  Age: 14 Year
  Sex: Male

DRUGS (3)
  1. EPINEPHRINE [Suspect]
     Active Substance: EPINEPHRINE
     Indication: Vasoplegia syndrome
     Route: 065
  2. NOREPINEPHRINE BITARTRATE [Suspect]
     Active Substance: NOREPINEPHRINE BITARTRATE
     Indication: Vasoplegia syndrome
     Route: 065
  3. MILRINONE [Suspect]
     Active Substance: MILRINONE
     Indication: Cardiogenic shock
     Route: 065

REACTIONS (1)
  - Condition aggravated [Unknown]
